FAERS Safety Report 9237821 (Version 2)
Quarter: 2013Q2

REPORT INFORMATION
  Report Type: Spontaneous
  Country: US (occurrence: US)
  Receive Date: 20130418
  Receipt Date: 20130627
  Transmission Date: 20140414
  Serious: No
  Sender: FDA-Public Use
  Company Number: US-BIOGENIDEC-2013BI034237

PATIENT
  Sex: Male

DRUGS (1)
  1. TYSABRI [Suspect]
     Indication: MULTIPLE SCLEROSIS
     Route: 042
     Dates: start: 20120217, end: 20130412

REACTIONS (7)
  - Confusional state [Not Recovered/Not Resolved]
  - Speech disorder [Recovered/Resolved]
  - White blood cell count increased [Recovered/Resolved]
  - Nuclear magnetic resonance imaging abnormal [Unknown]
  - Hemiparesis [Not Recovered/Not Resolved]
  - Muscle twitching [Unknown]
  - Multiple sclerosis relapse [Not Recovered/Not Resolved]
